FAERS Safety Report 24644205 (Version 3)
Quarter: 2024Q4

REPORT INFORMATION
  Report Type: Report from Study
  Country: JP (occurrence: JP)
  Receive Date: 20241120
  Receipt Date: 20241216
  Transmission Date: 20250114
  Serious: Yes (Life-Threatening, Hospitalization, Other)
  Sender: AMGEN
  Company Number: JP-Horizon-BUP-0031-2016

PATIENT
  Age: 10 Year
  Sex: Female
  Weight: 32.9 kg

DRUGS (35)
  1. BUPHENYL [Suspect]
     Active Substance: SODIUM PHENYLBUTYRATE
     Indication: Ornithine transcarbamoylase deficiency
     Dosage: 5 DOSAGE FORM, QD
     Route: 048
     Dates: start: 20130512, end: 20130518
  2. BUPHENYL [Suspect]
     Active Substance: SODIUM PHENYLBUTYRATE
     Dosage: 5 DOSAGE FORM, BID
     Route: 048
     Dates: start: 20130519, end: 20130522
  3. BUPHENYL [Suspect]
     Active Substance: SODIUM PHENYLBUTYRATE
     Dosage: 5 DOSAGE FORM, TID
     Route: 048
     Dates: start: 20130523, end: 20150115
  4. BUPHENYL [Suspect]
     Active Substance: SODIUM PHENYLBUTYRATE
     Dosage: 6 DOSAGE FORM, TID
     Route: 048
     Dates: start: 20150116
  5. BUPHENYL [Suspect]
     Active Substance: SODIUM PHENYLBUTYRATE
     Dosage: 7 DOSAGE FORM, TID
     Route: 048
  6. BUPHENYL [Suspect]
     Active Substance: SODIUM PHENYLBUTYRATE
     Dosage: 8 DOSAGE FORM, TID
     Route: 048
  7. BUPHENYL [Suspect]
     Active Substance: SODIUM PHENYLBUTYRATE
     Dosage: 9 DOSAGE FORM, TID
     Route: 048
     Dates: start: 20180328, end: 20181021
  8. BUPHENYL [Suspect]
     Active Substance: SODIUM PHENYLBUTYRATE
     Dosage: 10 DOSAGE FORM, TID
     Route: 048
     Dates: start: 20181022
  9. BUPHENYL [Suspect]
     Active Substance: SODIUM PHENYLBUTYRATE
     Dosage: 11 DOSAGE FORM, TID
     Route: 048
     Dates: start: 20190731, end: 20200426
  10. BUPHENYL [Suspect]
     Active Substance: SODIUM PHENYLBUTYRATE
     Dosage: 12 G, QD
     Route: 048
     Dates: start: 202003
  11. BUPHENYL [Suspect]
     Active Substance: SODIUM PHENYLBUTYRATE
     Dosage: 5 DOSAGE FORM, TID
     Route: 048
     Dates: start: 20200427, end: 20200427
  12. BUPHENYL [Suspect]
     Active Substance: SODIUM PHENYLBUTYRATE
     Dosage: 8 DOSAGE FORM, TID
     Route: 048
     Dates: start: 20200428
  13. BUPHENYL [Suspect]
     Active Substance: SODIUM PHENYLBUTYRATE
     Dosage: 5 DOSAGE FORM, TID
     Route: 048
     Dates: start: 20200501
  14. LEVOCARNITINE HYDROCHLORIDE [Concomitant]
     Active Substance: LEVOCARNITINE HYDROCHLORIDE
     Indication: Ornithine transcarbamoylase deficiency
     Dosage: 300 MG, TID
     Route: 048
     Dates: start: 20130827
  15. LEVOCARNITINE HYDROCHLORIDE [Concomitant]
     Active Substance: LEVOCARNITINE HYDROCHLORIDE
     Dosage: 600 MG, TID
     Route: 048
     Dates: start: 20130828
  16. LEVOCARNITINE HYDROCHLORIDE [Concomitant]
     Active Substance: LEVOCARNITINE HYDROCHLORIDE
     Dosage: 1500 MG, QD
     Route: 048
     Dates: start: 20130828
  17. Argi u [Concomitant]
     Indication: Ornithine transcarbamoylase deficiency
     Dosage: 2.4 G, TID
     Route: 048
     Dates: start: 20130430
  18. Argi u [Concomitant]
     Dosage: 6 G, QD
     Route: 048
  19. Argi u [Concomitant]
     Dosage: 8 G, QD
     Route: 048
  20. SODIUM BENZOATE [Concomitant]
     Active Substance: SODIUM BENZOATE
     Indication: Ornithine transcarbamoylase deficiency
     Dosage: 1.5 G, TID
     Route: 048
     Dates: end: 20130511
  21. SODIUM BENZOATE [Concomitant]
     Active Substance: SODIUM BENZOATE
     Dosage: 1.5 G, BID
     Route: 048
     Dates: start: 20130512, end: 20130518
  22. SODIUM BENZOATE [Concomitant]
     Active Substance: SODIUM BENZOATE
     Dosage: 1.5 G, QD
     Route: 048
     Dates: start: 20130519, end: 20130522
  23. SODIUM BENZOATE [Concomitant]
     Active Substance: SODIUM BENZOATE
     Dosage: 6 G, QD
     Route: 048
     Dates: start: 20181021, end: 20181024
  24. SODIUM BENZOATE [Concomitant]
     Active Substance: SODIUM BENZOATE
     Dosage: 6 G, QD
     Route: 048
  25. SODIUM BENZOATE [Concomitant]
     Active Substance: SODIUM BENZOATE
     Dosage: 3 G, QD
     Route: 048
     Dates: start: 20190814
  26. ARGININE [Concomitant]
     Active Substance: ARGININE
     Indication: Product used for unknown indication
     Dosage: UNK
  27. CITRULLINE [Concomitant]
     Active Substance: CITRULLINE
     Indication: Ornithine transcarbamoylase deficiency
     Dosage: 1.9 G, TID
     Route: 048
     Dates: start: 20130501, end: 20130630
  28. CITRULLINE [Concomitant]
     Active Substance: CITRULLINE
     Dosage: 1.6 G, TID
     Route: 048
     Dates: start: 20130701, end: 20130730
  29. CITRULLINE [Concomitant]
     Active Substance: CITRULLINE
     Dosage: 1 G, TID
     Route: 048
     Dates: start: 20130731
  30. CITRULLINE [Concomitant]
     Active Substance: CITRULLINE
     Dosage: 5 G, QD
     Route: 048
  31. CITRULLINE [Concomitant]
     Active Substance: CITRULLINE
     Dosage: 3 G, QD
     Route: 048
  32. CITRULLINE [Concomitant]
     Active Substance: CITRULLINE
     Dosage: 6 G, QD
     Route: 048
  33. CITRULLINE [Concomitant]
     Active Substance: CITRULLINE
     Dosage: 3 G, QD
     Route: 048
  34. CITRULLINE [Concomitant]
     Active Substance: CITRULLINE
     Dosage: 7 G, QD
     Route: 048
     Dates: start: 20191224
  35. POTASSIUM ASPARTATE [Concomitant]
     Active Substance: POTASSIUM ASPARTATE
     Indication: Product used for unknown indication
     Dosage: UNK

REACTIONS (7)
  - Hypokalaemia [Recovered/Resolved]
  - Hyperammonaemia [Recovered/Resolved]
  - Eating disorder [Recovered/Resolved]
  - Alkalosis hypochloraemic [Recovered/Resolved]
  - Eating disorder [Not Recovered/Not Resolved]
  - Hyperammonaemia [Recovered/Resolved]
  - Hyperammonaemia [Recovered/Resolved]

NARRATIVE: CASE EVENT DATE: 20141224
